FAERS Safety Report 12287064 (Version 2)
Quarter: 2016Q2

REPORT INFORMATION
  Report Type: Spontaneous
  Country: US (occurrence: US)
  Receive Date: 20160420
  Receipt Date: 20160520
  Transmission Date: 20160815
  Serious: Yes (Other)
  Sender: FDA-Public Use
  Company Number: US-JNJFOC-20160416379

PATIENT
  Age: 60 Year
  Sex: Male
  Weight: 78.47 kg

DRUGS (3)
  1. ATORVASTATIN [Concomitant]
     Active Substance: ATORVASTATIN
     Indication: BLOOD CHOLESTEROL
     Route: 065
  2. SIMPONI [Suspect]
     Active Substance: GOLIMUMAB
     Indication: COLITIS ULCERATIVE
     Route: 058
     Dates: start: 20160226
  3. PENTASA [Concomitant]
     Active Substance: MESALAMINE
     Route: 065
     Dates: end: 20160411

REACTIONS (4)
  - Erythema [Not Recovered/Not Resolved]
  - Mucous stools [Not Recovered/Not Resolved]
  - Rectal abscess [Recovering/Resolving]
  - Abdominal pain lower [Not Recovered/Not Resolved]

NARRATIVE: CASE EVENT DATE: 201603
